FAERS Safety Report 10290660 (Version 1)
Quarter: 2014Q3

REPORT INFORMATION
  Report Type: Spontaneous
  Country: IT (occurrence: None)
  Receive Date: 20140708
  Receipt Date: 20140708
  Transmission Date: 20150326
  Serious: Yes (Other)
  Sender: FDA-Public Use
  Company Number: AUR-APL-2014-07175

PATIENT
  Sex: Male

DRUGS (1)
  1. AMOXICILLIN + CLAVULANIC ACID [Suspect]
     Active Substance: AMOXICILLIN\CLAVULANIC ACID
     Indication: PRODUCT USED FOR UNKNOWN INDICATION

REACTIONS (2)
  - Adverse reaction [None]
  - Anaphylactic shock [None]

NARRATIVE: CASE EVENT DATE: 20140211
